FAERS Safety Report 19812387 (Version 1)
Quarter: 2021Q3

REPORT INFORMATION
  Report Type: Spontaneous
  Country: US (occurrence: US)
  Receive Date: 20210909
  Receipt Date: 20210909
  Transmission Date: 20211014
  Serious: Yes (Other)
  Sender: FDA-Public Use
  Company Number: US-FARMAPROD-202107-1117

PATIENT
  Sex: Female

DRUGS (5)
  1. SYSTANE (HYPROMELLOSE 2910 (4000 MPA.S)) [Concomitant]
     Active Substance: HYPROMELLOSE 2910 (4000 MPA.S)
     Dosage: 0.3 %?0.4% DROPERETTE
  2. COMBIGAN [Concomitant]
     Active Substance: BRIMONIDINE TARTRATE\TIMOLOL MALEATE
     Dosage: 0.2%?0.5%
  3. PREDNISOLON [Concomitant]
     Active Substance: PREDNISOLONE
  4. RESTASIS [Concomitant]
     Active Substance: CYCLOSPORINE
  5. OXERVATE [Suspect]
     Active Substance: CENEGERMIN-BKBJ
     Indication: NEUROTROPHIC KERATOPATHY
     Route: 047
     Dates: start: 20210625

REACTIONS (4)
  - Eye irritation [Unknown]
  - Product administration error [Unknown]
  - Visual impairment [Not Recovered/Not Resolved]
  - Eyelid margin crusting [Unknown]
